FAERS Safety Report 4937316-6 (Version None)
Quarter: 2006Q1

REPORT INFORMATION
  Report Type: 
  Country: None (occurrence: None)
  Receive Date: 20060309
  Receipt Date: 20060202
  Transmission Date: 20060701
  Serious: Yes (Hospitalization)
  Sender: FDA-Public Use
  Company Number: PT-AMGEN-UK171389

PATIENT
  Sex: Male
  Weight: 76 kg

DRUGS (16)
  1. NEULASTA - PREFILLED SYRINGE [Suspect]
     Indication: CHEMOTHERAPY
     Route: 058
     Dates: start: 20051208, end: 20051208
  2. NEUPOGEN [Suspect]
     Indication: CHEMOTHERAPY
     Route: 065
     Dates: start: 20051213
  3. FOLIC ACID [Concomitant]
  4. PREDNISOLONE [Concomitant]
  5. HYGROTON [Concomitant]
     Route: 048
  6. OMEPRAZOLE [Concomitant]
  7. SYMBICORT [Concomitant]
  8. AMITRIPTYLINE HCL [Concomitant]
  9. ATARAX [Concomitant]
     Route: 048
  10. PENTOXIFYLLINE [Concomitant]
  11. METHOTREXATE [Concomitant]
  12. CYCLOPHOSPHAMIDE [Concomitant]
     Dates: start: 20050914, end: 20051207
  13. DOXORUBICIN HCL [Concomitant]
     Dates: start: 20050914, end: 20051207
  14. ONCOVIN [Concomitant]
     Dates: start: 20050914, end: 20051207
  15. PREDNISONE [Concomitant]
     Dates: start: 20050914, end: 20051207
  16. RITUXAN [Concomitant]
     Dates: start: 20051006, end: 20051207

REACTIONS (5)
  - CANDIDIASIS [None]
  - DRUG INEFFECTIVE [None]
  - FEBRILE NEUTROPENIA [None]
  - FEELING ABNORMAL [None]
  - PROSTRATION [None]
